FAERS Safety Report 19919273 (Version 1)
Quarter: 2021Q4

REPORT INFORMATION
  Report Type: Spontaneous
  Country: US (occurrence: US)
  Receive Date: 20211004
  Receipt Date: 20211004
  Transmission Date: 20220303
  Serious: Yes (Other)
  Sender: FDA-Public Use
  Company Number: US-AMGEN-USASP2021149872

PATIENT
  Age: 58 Year
  Sex: Male

DRUGS (1)
  1. FILGRASTIM [Suspect]
     Active Substance: FILGRASTIM
     Indication: Neutropenia
     Dosage: UNK
     Route: 065

REACTIONS (4)
  - Pulmonary nocardiosis [Recovered/Resolved]
  - Bone marrow failure [Recovered/Resolved]
  - Neutropenia [Unknown]
  - Therapeutic product effect incomplete [Unknown]
